FAERS Safety Report 21644177 (Version 3)
Quarter: 2023Q1

REPORT INFORMATION
  Report Type: Spontaneous
  Country: JP (occurrence: JP)
  Receive Date: 20221125
  Receipt Date: 20230125
  Transmission Date: 20230417
  Serious: No
  Sender: FDA-Public Use
  Company Number: JP-GSK-JP2022JPN171213

PATIENT

DRUGS (7)
  1. SOTROVIMAB [Suspect]
     Active Substance: SOTROVIMAB
     Indication: COVID-19
     Dosage: 500 MG, SINGLE
     Route: 041
     Dates: start: 20221105, end: 20221105
  2. CANDESARTAN CILEXETIL [Concomitant]
     Active Substance: CANDESARTAN CILEXETIL
     Indication: Hypertension
     Dosage: 8 MG
  3. NORVASC OD TABLETS [Concomitant]
     Indication: Hypertension
     Dosage: 2.5 MG, QD, MORNING
  4. MAINTATE (BISOPROLOL FUMARATE) [Concomitant]
     Indication: Arrhythmia
     Dosage: 2.5 MG, QD, MORNING
  5. PLETAAL OD TABLETS [Concomitant]
     Indication: Cerebral infarction
     Dosage: 100 MG, BID, MORNING AND EVENING
  6. TAKEPRON OD TABLETS [Concomitant]
     Indication: Hiatus hernia
     Dosage: 15 MG, QD, MORNING
  7. SODIUM FERROUS CITRATE [Concomitant]
     Active Substance: SODIUM FERROUS CITRATE
     Indication: Anaemia
     Dosage: 50 MG, QD, EVENING

REACTIONS (2)
  - Hypotension [Recovered/Resolved]
  - Blood pressure decreased [Recovered/Resolved]

NARRATIVE: CASE EVENT DATE: 20221105
